FAERS Safety Report 5856653-4 (Version None)
Quarter: 2008Q3

REPORT INFORMATION
  Report Type: 
  Country: None (occurrence: None)
  Receive Date: 20080825
  Receipt Date: 20080821
  Transmission Date: 20090109
  Serious: Yes (Other)
  Sender: FDA-Public Use
  Company Number: US-AVENTIS-200815425US

PATIENT
  Age: 33 Year
  Sex: Female

DRUGS (1)
  1. RIFAMPIN [Suspect]
     Route: 048

REACTIONS (2)
  - CONTUSION [None]
  - THROMBOTIC THROMBOCYTOPENIC PURPURA [None]
